FAERS Safety Report 5854295-8 (Version None)
Quarter: 2008Q3

REPORT INFORMATION
  Report Type: 
  Country: None (occurrence: None)
  Receive Date: 20080822
  Receipt Date: 20080811
  Transmission Date: 20090109
  Serious: Yes (Hospitalization)
  Sender: FDA-Public Use
  Company Number: DE-PFIZER INC-2008067627

PATIENT
  Sex: Male

DRUGS (4)
  1. CHANTIX [Suspect]
     Indication: SMOKING CESSATION THERAPY
     Route: 048
  2. AMARYL [Concomitant]
     Indication: DIABETES MELLITUS
     Route: 048
  3. DELIX [Concomitant]
     Route: 048
  4. METOPROLOL [Concomitant]
     Route: 048

REACTIONS (3)
  - AGGRESSION [None]
  - PSYCHIATRIC DECOMPENSATION [None]
  - SUICIDAL IDEATION [None]
